FAERS Safety Report 8762791 (Version 2)
Quarter: 2012Q4

REPORT INFORMATION
  Report Type: 
  Country: US (occurrence: US)
  Receive Date: 20120830
  Receipt Date: 20121123
  Transmission Date: 20130627
  Serious: No
  Sender: FDA-Public Use
  Company Number: US-PFIZER INC-2012208781

PATIENT
  Age: 9 Year
  Sex: Female
  Weight: 27 kg

DRUGS (14)
  1. GENOTROPIN [Suspect]
     Indication: GROWTH HORMONE DEFICIENCY
     Dosage: 1.1 mg,daily
     Route: 058
     Dates: start: 2007
  2. GENOTROPIN [Suspect]
     Dosage: UNK
     Route: 058
     Dates: start: 20110603
  3. PREVACID [Concomitant]
     Dosage: 30 mg, (take one capsule by mouth every day before a meal)
     Route: 048
  4. PREVACID [Concomitant]
     Dosage: 15 mg, 1x/day (Dispense 30 days supply- take one capsule every day)
  5. ALBUTEROL SULFATE [Concomitant]
     Dosage: 0.083 %, as needed (Inhale one vial every four to six hour as needed-PRN)
  6. FLOVENT [Concomitant]
     Dosage: 44 ug, (Inhale two puffs twice every day)
  7. ORAPRED [Concomitant]
     Dosage: 30 mg, 1x/day (take one tablet by mouth every day for 3-5days)
     Route: 048
  8. ORAPRED [Concomitant]
     Dosage: 15Mg/5 ml solution (take two teaspoonfuls by mouth every day for five days as directed)
  9. PROAIR HFA [Concomitant]
     Indication: COUGH
     Dosage: 90 ug, (Dispense two 8.5 gram canister- by inhalation route 2 puffs every 4-6 hours as needed )
  10. PROAIR HFA [Concomitant]
     Indication: WHEEZE
  11. ALBUTEROL SULFATE HFA [Concomitant]
     Dosage: 90 ug, (Dispense 18 gram canister inhale two puffs by inhalation route every four to six hours-PRN)
  12. EPIPEN [Concomitant]
     Dosage: 0.15 mg
     Route: 030
  13. TAMIFLU [Concomitant]
     Dosage: 1 DF, 2x/day
     Route: 048
  14. XOPENEX HFA [Concomitant]
     Dosage: 45 ug,(Disp 15g Aer W/Adap-inhale two puffs by inhalation route every four to six hours as needed)

REACTIONS (4)
  - Scoliosis [Unknown]
  - Blood oestrogen increased [Unknown]
  - Product quality issue [Unknown]
  - Incorrect dose administered [Unknown]
